FAERS Safety Report 7205829-2 (Version None)
Quarter: 2010Q4

REPORT INFORMATION
  Report Type: 
  Country: None (occurrence: None)
  Receive Date: 20101231
  Receipt Date: 20101229
  Transmission Date: 20110411
  Serious: Yes (Hospitalization)
  Sender: FDA-Public Use
  Company Number: DE-PFIZER INC-2010164656

PATIENT
  Age: 76 Year
  Sex: Male
  Weight: 82.6 kg

DRUGS (9)
  1. TEMSIROLIMUS [Suspect]
     Indication: PROSTATE CANCER
     Dosage: 15 MG, WEEKLY
     Route: 042
     Dates: start: 20101124, end: 20101130
  2. DOCETAXEL [Suspect]
     Indication: PROSTATE CANCER
     Dosage: 60 MG/M2, EVERY 3 WEEKS
     Route: 042
     Dates: start: 20101124, end: 20101124
  3. ASPIRIN [Concomitant]
     Dosage: 100 MG, DAILY
     Route: 048
     Dates: start: 20000101
  4. SIMVASTATIN [Concomitant]
     Dosage: 40 MG, DAILY
     Route: 048
     Dates: start: 20000101
  5. BELOC-ZOC COMP [Concomitant]
     Dosage: ONE TABLET DAILY
     Route: 048
     Dates: start: 20000101
  6. NOVALGIN [Concomitant]
     Dosage: TOTAL DAILY DOSE OF 2G
     Route: 048
     Dates: start: 20101117, end: 20101203
  7. PANTOZOL [Concomitant]
     Dosage: TOTAL DAILY DOSE OF 40MG
     Route: 048
     Dates: start: 20101001
  8. MOVICOL [Concomitant]
     Dosage: ONE BAG DAILY
     Route: 048
     Dates: start: 20101117
  9. VERGENTAN [Concomitant]
     Dosage: 50 MG DAILY, AS NEEDED
     Route: 048
     Dates: start: 20100901, end: 20101203

REACTIONS (1)
  - FEBRILE NEUTROPENIA [None]
